FAERS Safety Report 17542838 (Version 2)
Quarter: 2020Q2

REPORT INFORMATION
  Report Type: Report from Study
  Country: None (occurrence: US)
  Receive Date: 20200315
  Receipt Date: 20200428
  Transmission Date: 20200713
  Serious: Yes (Hospitalization)
  Sender: FDA-Public Use
  Company Number: US-ABBVIE-20K-163-3315932-00

PATIENT
  Age: 51 Year
  Sex: Male
  Weight: 126.67 kg

DRUGS (1)
  1. SKYRIZI [Suspect]
     Active Substance: RISANKIZUMAB-RZAA
     Indication: PSORIASIS
     Route: 058
     Dates: start: 20191118, end: 202001

REACTIONS (6)
  - Post procedural swelling [Unknown]
  - Atrial flutter [Recovered/Resolved]
  - Incision site haematoma [Recovering/Resolving]
  - Incision site abscess [Recovering/Resolving]
  - Atrial fibrillation [Recovered/Resolved]
  - Procedural pain [Unknown]

NARRATIVE: CASE EVENT DATE: 202003
